FAERS Safety Report 5015412-5 (Version None)
Quarter: 2006Q2

REPORT INFORMATION
  Report Type: 
  Country: None (occurrence: None)
  Receive Date: 20060530
  Receipt Date: 20060530
  Transmission Date: 20061013
  Serious: Yes (Other)
  Sender: FDA-Public Use
  Company Number: None

PATIENT
  Age: 74 Year
  Sex: Male
  Weight: 83.5 kg

DRUGS (6)
  1. TRAMADOL HCL [Suspect]
  2. TIOTROPIUM INHL [Concomitant]
  3. BETAMETHASONE DIPROPIONATE [Concomitant]
  4. MELOXICAM [Concomitant]
  5. SIMVASTATIN [Concomitant]
  6. FLUNISOLIDE NASAL INH [Concomitant]

REACTIONS (2)
  - DIZZINESS [None]
  - URINARY RETENTION [None]
